FAERS Safety Report 7215210-8 (Version None)
Quarter: 2011Q1

REPORT INFORMATION
  Report Type: 
  Country: None (occurrence: None)
  Receive Date: 20110107
  Receipt Date: 20101101
  Transmission Date: 20110831
  Serious: No
  Sender: FDA-Public Use
  Company Number: A0889970A

PATIENT
  Age: 31 Year
  Sex: Male

DRUGS (4)
  1. FLONASE [Concomitant]
  2. LOVAZA [Suspect]
     Dosage: 3CAP PER DAY
     Route: 048
     Dates: start: 20100701
  3. ZYRTEC [Concomitant]
  4. SYMBICORT [Concomitant]

REACTIONS (1)
  - BLOOD URIC ACID INCREASED [None]
